FAERS Safety Report 6268698-3 (Version None)
Quarter: 2009Q3

REPORT INFORMATION
  Report Type: 
  Country: None (occurrence: None)
  Receive Date: 20090713
  Receipt Date: 20090713
  Transmission Date: 20100115
  Serious: Yes (Other)
  Sender: FDA-Public Use
  Company Number: None

PATIENT
  Age: 71 Year
  Sex: Female
  Weight: 79.6 kg

DRUGS (20)
  1. LEVAQUIN [Suspect]
     Indication: CHOLECYSTITIS ACUTE
     Dosage: 500MG ONCE DAILY IV
     Route: 042
     Dates: start: 20090701, end: 20090706
  2. METRONIDAZOLE [Suspect]
     Indication: CHOLECYSTITIS ACUTE
     Dosage: 500MG Q8H IV BOLUS
     Route: 040
     Dates: start: 20090701, end: 20090708
  3. FUROSEMIDE [Concomitant]
  4. LANTUS [Concomitant]
  5. METOPROLOL SUCCINATE [Concomitant]
  6. SIMVASTATIN [Concomitant]
  7. DIVALPROEX SODIUM [Concomitant]
  8. PANTOPRAZOLE SODIUM [Concomitant]
  9. LEVOBUNOLOL HCL [Concomitant]
  10. ASPIRIN [Concomitant]
  11. RAMIPRIL [Concomitant]
  12. NITROGLYCERIN [Concomitant]
  13. TIPICALLY [Concomitant]
  14. HUMALOG [Concomitant]
  15. METHYLPREDNISOLONE [Concomitant]
  16. ACETAMINOPHEN [Concomitant]
  17. MORPHINE SULFATE [Concomitant]
  18. MIDAZOLAM HCL [Concomitant]
  19. AZTREONAM [Concomitant]
  20. HEPARIN [Concomitant]

REACTIONS (1)
  - ELECTROCARDIOGRAM QT PROLONGED [None]
